FAERS Safety Report 9190944 (Version 1)
Quarter: 2013Q1

REPORT INFORMATION
  Report Type: Report from Study
  Country: IE (occurrence: IE)
  Receive Date: 20130326
  Receipt Date: 20130326
  Transmission Date: 20140127
  Serious: Yes (Other)
  Sender: FDA-Public Use
  Company Number: IE-ROCHE-1205332

PATIENT
  Age: 30 Year
  Sex: Male
  Weight: 94.11 kg

DRUGS (6)
  1. RANIBIZUMAB [Suspect]
     Indication: RETINAL VEIN OCCLUSION
     Dosage: MOST RECENT DOSE PRIOR TO EVENT:11/MAR/2013
     Route: 050
     Dates: start: 20121001, end: 20121001
  2. RANIBIZUMAB [Suspect]
     Route: 050
     Dates: start: 20121105, end: 20121105
  3. RANIBIZUMAB [Suspect]
     Route: 050
     Dates: start: 20121203, end: 20121203
  4. RANIBIZUMAB [Suspect]
     Route: 050
     Dates: start: 20130109, end: 20130109
  5. RANIBIZUMAB [Suspect]
     Route: 050
     Dates: start: 20130206, end: 20130206
  6. RANIBIZUMAB [Suspect]
     Route: 050
     Dates: start: 20130311, end: 20130311

REACTIONS (1)
  - Myopia [Recovered/Resolved]
